FAERS Safety Report 8122303-X (Version None)
Quarter: 2012Q1

REPORT INFORMATION
  Report Type: 
  Country: None (occurrence: None)
  Receive Date: 20120208
  Receipt Date: 20120203
  Transmission Date: 20120608
  Serious: Yes (Other)
  Sender: FDA-Public Use
  Company Number: US-BAYER-201024774NA

PATIENT
  Age: 58 Year
  Sex: Female
  Weight: 70 kg

DRUGS (34)
  1. MAGNEVIST [Suspect]
     Indication: NUCLEAR MAGNETIC RESONANCE IMAGING BRAIN
     Dates: start: 20050526, end: 20050526
  2. RENAGEL [Concomitant]
  3. ROBAXIN [Concomitant]
  4. ASPIRIN [Concomitant]
     Dosage: 81 MG, TID
  5. PROHANCE [Suspect]
     Indication: IMAGING PROCEDURE
  6. KLONOPIN [Concomitant]
     Indication: RESTLESS LEGS SYNDROME
     Dosage: 0.5 MG, HS
  7. CORTICOSTEROIDS [Concomitant]
     Dates: start: 19860101, end: 19960101
  8. COLCHICINE [Concomitant]
  9. STEROID ANTIBACTERIALS [Concomitant]
     Indication: PROPHYLAXIS AGAINST TRANSPLANT REJECTION
     Dosage: UNK
     Dates: start: 19860101, end: 19960101
  10. CALCITRIOL [Concomitant]
     Dosage: 0.5 MG, BID
  11. NEURONTIN [Concomitant]
     Indication: RESTLESS LEGS SYNDROME
     Dosage: 200 MG, HS
  12. COUMADIN [Concomitant]
     Dosage: 2.5 MG, UNK
  13. SENSIPAR [Concomitant]
  14. ZEMPLAR [Concomitant]
     Dosage: 10 MCG
     Route: 042
  15. LEVOTHYROXINE SODIUM [Concomitant]
     Indication: HYPOTHYROIDISM
     Dosage: 0.125 MG, QD
  16. PHOSLO [Concomitant]
  17. GABAPENTIN [Concomitant]
  18. OPTIMARK [Suspect]
     Indication: IMAGING PROCEDURE
  19. IRON SUPPLEMENT [Concomitant]
     Indication: ANAEMIA PROPHYLAXIS
     Dosage: 1 TABLET, QD
     Dates: start: 20000101
  20. FOLBEE [Concomitant]
     Indication: SUPPLEMENTATION THERAPY
     Dosage: 1 TABLET, QD
  21. IMMUNOSUPPRESSIVE AGENTS [Concomitant]
     Dosage: UNK
     Dates: start: 19860101, end: 19960101
  22. ANTITHROMBOTIC AGENTS [Concomitant]
     Indication: THROMBOSIS PROPHYLAXIS
     Dosage: UNK
     Dates: start: 20050101, end: 20080101
  23. SYNTHROID [Concomitant]
     Dosage: 0.125 MG, QD
  24. NORVASC [Concomitant]
     Dosage: 5 MG, UNK
  25. MAGNEVIST [Suspect]
     Indication: IMAGING PROCEDURE
     Dosage: 20 ML, UNK
     Route: 042
     Dates: start: 20031220
  26. EPOGEN [Concomitant]
     Indication: ANAEMIA
     Dates: start: 19860101
  27. IMMUNOSUPPRESSIVE AGENTS [Concomitant]
     Indication: PROPHYLAXIS AGAINST TRANSPLANT REJECTION
     Dosage: UNK
     Dates: start: 19860101, end: 19960101
  28. OMNISCAN [Suspect]
     Indication: IMAGING PROCEDURE
  29. MIDODRINE HYDROCHLORIDE [Concomitant]
     Indication: HYPOTENSION
     Dosage: 10 MG, QD
  30. NEPHROCAPS [Concomitant]
  31. HORMONES AND RELATED AGENTS [Concomitant]
     Indication: HORMONE REPLACEMENT THERAPY
     Dosage: UNK
     Dates: start: 19820101, end: 20060101
  32. MAGNEVIST [Suspect]
     Indication: ANGIOGRAM
     Dosage: 15 ML, UNK
     Dates: start: 20060530
  33. MULTIHANCE [Suspect]
     Indication: IMAGING PROCEDURE
  34. PLAVIX [Concomitant]
     Indication: THROMBOSIS PROPHYLAXIS
     Dosage: 75 MG, QD

REACTIONS (19)
  - LIVEDO RETICULARIS [None]
  - JOINT STIFFNESS [None]
  - MOBILITY DECREASED [None]
  - SKIN HYPERTROPHY [None]
  - ANXIETY [None]
  - SKIN SWELLING [None]
  - PRURITUS [None]
  - PEAU D'ORANGE [None]
  - SCAR [None]
  - ANHEDONIA [None]
  - NEPHROGENIC SYSTEMIC FIBROSIS [None]
  - MUSCULAR WEAKNESS [None]
  - SKIN FIBROSIS [None]
  - SKIN HYPERPIGMENTATION [None]
  - SCAB [None]
  - SKIN INDURATION [None]
  - SKIN BURNING SENSATION [None]
  - SKIN DISORDER [None]
  - PAIN IN EXTREMITY [None]
